FAERS Safety Report 5356016-4 (Version None)
Quarter: 2007Q2

REPORT INFORMATION
  Report Type: 
  Country: None (occurrence: None)
  Receive Date: 20070613
  Receipt Date: 20070530
  Transmission Date: 20071010
  Serious: Yes (Other)
  Sender: FDA-Public Use
  Company Number: IT-GENENTECH-242789

PATIENT

DRUGS (3)
  1. TRASTUZUMAB [Suspect]
     Indication: BREAST CANCER METASTATIC
     Dosage: 8 MG/KG, Q3W
     Route: 042
  2. TRASTUZUMAB [Suspect]
     Dosage: 6 MG/KG, Q3W
  3. VINORELBINE [Suspect]
     Indication: BREAST CANCER METASTATIC
     Dosage: 30 MG/M2, UNK

REACTIONS (2)
  - EJECTION FRACTION DECREASED [None]
  - HEPATOTOXICITY [None]
